FAERS Safety Report 8589323-2 (Version None)
Quarter: 2012Q3

REPORT INFORMATION
  Report Type: 
  Country: None (occurrence: None)
  Receive Date: 20120813
  Receipt Date: 20120802
  Transmission Date: 20120928
  Serious: Yes (Other)
  Sender: FDA-Public Use
  Company Number: US-BAXTER-2012BAX013879

PATIENT
  Age: 79 Year
  Sex: Female
  Weight: 59.02 kg

DRUGS (1)
  1. VANCOMYCIN [Suspect]

REACTIONS (2)
  - TUBULOINTERSTITIAL NEPHRITIS [None]
  - RENAL TUBULAR NECROSIS [None]
